FAERS Safety Report 7739164-0 (Version None)
Quarter: 2011Q3

REPORT INFORMATION
  Report Type: 
  Country: None (occurrence: None)
  Receive Date: 20110909
  Receipt Date: 20110902
  Transmission Date: 20111222
  Serious: No
  Sender: FDA-Public Use
  Company Number: US-BIOGENIDEC-2011BI033765

PATIENT
  Sex: Female

DRUGS (2)
  1. AVONEX [Suspect]
     Indication: MULTIPLE SCLEROSIS
     Route: 030
     Dates: start: 20050509
  2. AVONEX [Suspect]
     Route: 030
     Dates: start: 20000103, end: 20020107

REACTIONS (3)
  - INFLUENZA LIKE ILLNESS [None]
  - ANXIETY [None]
  - INJECTION SITE IRRITATION [None]
